FAERS Safety Report 7715988-0 (Version None)
Quarter: 2011Q3

REPORT INFORMATION
  Report Type: 
  Country: None (occurrence: None)
  Receive Date: 20110822
  Receipt Date: 20110805
  Transmission Date: 20111222
  Serious: Yes (Other)
  Sender: FDA-Public Use
  Company Number: 2011MA011407

PATIENT
  Age: 45 Year
  Sex: Male

DRUGS (2)
  1. TRIAMCINOLONE ACETONIDE [Suspect]
     Indication: JOINT INJECTION
     Dosage: 40 MG; X1; IA
     Route: 014
  2. LIDOCAINE [Suspect]
     Indication: JOINT INJECTION
     Dosage: 2 ML 1%; X1; IA
     Route: 014

REACTIONS (8)
  - BACK PAIN [None]
  - INJECTION SITE INJURY [None]
  - EPIDURAL LIPOMATOSIS [None]
  - FAT TISSUE INCREASED [None]
  - LIPOMATOSIS [None]
  - NUCLEAR MAGNETIC RESONANCE IMAGING ABNORMAL [None]
  - PAIN IN EXTREMITY [None]
  - GAIT DISTURBANCE [None]
